FAERS Safety Report 21656623 (Version 1)
Quarter: 2022Q4

REPORT INFORMATION
  Report Type: Spontaneous
  Country: FR (occurrence: FR)
  Receive Date: 20221129
  Receipt Date: 20221129
  Transmission Date: 20230113
  Serious: Yes (Death, Other)
  Sender: FDA-Public Use
  Company Number: None

PATIENT
  Age: 27 Year
  Sex: Female
  Weight: 119 kg

DRUGS (1)
  1. LOVENOX [Suspect]
     Active Substance: ENOXAPARIN SODIUM
     Indication: Gastric bypass
     Dosage: 4000 10*6.[IU] QD
     Route: 058
     Dates: start: 20221029, end: 20221101

REACTIONS (2)
  - Death [Fatal]
  - Wrong strength [Fatal]

NARRATIVE: CASE EVENT DATE: 20221102
